FAERS Safety Report 5807002-9 (Version None)
Quarter: 2008Q3

REPORT INFORMATION
  Report Type: 
  Country: None (occurrence: None)
  Receive Date: 20080708
  Receipt Date: 20080701
  Transmission Date: 20090109
  Serious: Yes (Hospitalization)
  Sender: FDA-Public Use
  Company Number: 2008SP010088

PATIENT
  Age: 59 Year
  Sex: Male

DRUGS (2)
  1. PEG-INTRON [Suspect]
     Indication: HEPATITIS C
     Dosage: SC
     Route: 058
  2. REBETOL [Suspect]
     Indication: CHRONIC HEPATITIS
     Dosage: PO
     Route: 048

REACTIONS (7)
  - ANTI-INSULIN RECEPTOR ANTIBODY POSITIVE [None]
  - ASTHENIA [None]
  - HYPERGLYCAEMIA [None]
  - HYPERINSULINAEMIA [None]
  - HYPOKALAEMIA [None]
  - PYREXIA [None]
  - RENAL TUBULAR DISORDER [None]
